FAERS Safety Report 10595206 (Version 1)
Quarter: 2014Q4

REPORT INFORMATION
  Report Type: Spontaneous
  Country: US (occurrence: None)
  Receive Date: 20141119
  Receipt Date: 20141119
  Transmission Date: 20150529
  Serious: No
  Sender: FDA-Public Use
  Company Number: None

PATIENT
  Age: 63 Year
  Sex: Female
  Weight: 70.4 kg

DRUGS (7)
  1. LEVOFLOXACIN. [Concomitant]
     Active Substance: LEVOFLOXACIN
  2. ODANSETRON [Concomitant]
     Active Substance: ONDANSETRON
  3. ATENOLOL. [Concomitant]
     Active Substance: ATENOLOL
  4. LEVOTHYROXINE [Concomitant]
     Active Substance: LEVOTHYROXINE
  5. DAPSONE. [Concomitant]
     Active Substance: DAPSONE
  6. LORAZEPAM. [Concomitant]
     Active Substance: LORAZEPAM
  7. CYTARABINE. [Suspect]
     Active Substance: CYTARABINE
     Dosage: DOSING WAS 2 MG/M SQ Q 12 HOURS

REACTIONS (1)
  - Neutrophil count decreased [None]

NARRATIVE: CASE EVENT DATE: 20141112
